FAERS Safety Report 7535164-4 (Version None)
Quarter: 2011Q2

REPORT INFORMATION
  Report Type: 
  Country: None (occurrence: None)
  Receive Date: 20110609
  Receipt Date: 20090302
  Transmission Date: 20111010
  Serious: Yes (Hospitalization)
  Sender: FDA-Public Use
  Company Number: PHHY2009JP02127

PATIENT
  Sex: Female
  Weight: 55 kg

DRUGS (1)
  1. LETROZOLE [Suspect]
     Indication: BREAST CANCER
     Dosage: 2.5 MG, QD
     Route: 048
     Dates: start: 20071005, end: 20080418

REACTIONS (5)
  - MALAISE [None]
  - CEREBRAL INFARCTION [None]
  - INTRACRANIAL ANEURYSM [None]
  - HEADACHE [None]
  - HEMIPARESIS [None]
